FAERS Safety Report 5966195-3 (Version None)
Quarter: 2008Q4

REPORT INFORMATION
  Report Type: 
  Country: None (occurrence: None)
  Receive Date: 20081125
  Receipt Date: 20081119
  Transmission Date: 20090506
  Serious: Yes (Life-Threatening, Hospitalization, Other)
  Sender: FDA-Public Use
  Company Number: CA-CELGENEUS-028-C5013-08061582

PATIENT
  Sex: Male
  Weight: 86.5 kg

DRUGS (19)
  1. REVLIMID [Suspect]
     Indication: MULTIPLE MYELOMA
     Route: 048
     Dates: start: 20070720, end: 20080604
  2. REVLIMID [Suspect]
     Route: 048
     Dates: start: 20080517, end: 20080604
  3. DEXAMETHASONE 0.5MG TAB [Suspect]
     Indication: MULTIPLE MYELOMA
     Route: 048
     Dates: start: 20070720
  4. DEXAMETHASONE 0.5MG TAB [Suspect]
     Route: 048
     Dates: start: 20080517
  5. MAXERAN [Concomitant]
     Route: 048
     Dates: start: 20080605
  6. METOPROLOL TARTRATE [Concomitant]
     Indication: MYOCARDIAL INFARCTION
     Dosage: 25-37.5MG
     Route: 048
     Dates: start: 20080606, end: 20080620
  7. METOPROLOL TARTRATE [Concomitant]
     Indication: ATRIAL FIBRILLATION
     Route: 048
     Dates: start: 20080620
  8. QUININE SULFATE [Concomitant]
     Indication: PNEUMONIA
     Route: 048
     Dates: start: 20080104, end: 20080616
  9. FUROSEMIDE [Concomitant]
     Indication: PROPHYLAXIS
     Route: 051
     Dates: start: 20080606, end: 20080606
  10. RAMIPRIL [Concomitant]
     Indication: ATRIAL FIBRILLATION
     Dosage: 10-2.5MG
     Route: 048
     Dates: start: 20080607
  11. RAMIPRIL [Concomitant]
     Indication: MYOCARDIAL INFARCTION
  12. ATIVAN [Concomitant]
     Indication: ANXIETY
     Route: 048
     Dates: start: 20080611, end: 20080612
  13. DIGOXIN [Concomitant]
     Indication: ATRIAL FIBRILLATION
     Route: 048
     Dates: start: 20080612
  14. OLANZAPINE [Concomitant]
     Indication: ANXIETY
     Dosage: 2.5-5.0MG
     Route: 065
     Dates: start: 20080614
  15. OLANZAPINE [Concomitant]
     Indication: AGITATION
  16. CIPROFLOXACIN [Concomitant]
     Indication: INFECTION PROPHYLAXIS
     Route: 048
     Dates: start: 20080627
  17. MULTI-VITAMINS [Concomitant]
     Route: 048
     Dates: start: 20080605, end: 20080613
  18. OXYCONTIN [Concomitant]
     Indication: PAIN MANAGEMENT
     Route: 048
     Dates: start: 20080604
  19. ATORVASTATIN CALCIUM [Concomitant]
     Route: 048
     Dates: start: 20080608

REACTIONS (5)
  - ATRIAL FIBRILLATION [None]
  - CEREBROVASCULAR ACCIDENT [None]
  - MYOCARDIAL INFARCTION [None]
  - PNEUMONIA [None]
  - THROMBOCYTOPENIA [None]
